FAERS Safety Report 10174855 (Version 2)
Quarter: 2014Q2

REPORT INFORMATION
  Report Type: Spontaneous
  Country: US (occurrence: US)
  Receive Date: 20140515
  Receipt Date: 20140606
  Transmission Date: 20141212
  Serious: No
  Sender: FDA-Public Use
  Company Number: US-PFIZER INC-2014130694

PATIENT
  Age: 70 Year
  Sex: Female

DRUGS (8)
  1. GABAPENTIN [Suspect]
     Dosage: UNK
  2. PANTOPRAZOLE [Suspect]
     Dosage: UNK
  3. LORAZEPAM [Suspect]
     Dosage: UNK
  4. PRAVASTATIN SODIUM [Suspect]
     Dosage: UNK
  5. SYNTHROID [Suspect]
     Dosage: UNK
  6. CYMBALTA [Suspect]
     Dosage: UNK
  7. TOPROL XL [Suspect]
     Dosage: UNK
  8. ZESTRIL [Suspect]
     Dosage: UNK

REACTIONS (1)
  - Drug hypersensitivity [Unknown]
